FAERS Safety Report 8805729 (Version 2)
Quarter: 2012Q4

REPORT INFORMATION
  Report Type: Report from Study
  Country: JP (occurrence: JP)
  Receive Date: 20120924
  Receipt Date: 20121022
  Transmission Date: 20130627
  Serious: Yes (Other)
  Sender: FDA-Public Use
  Company Number: JP-ROCHE-1133074

PATIENT
  Sex: Male

DRUGS (17)
  1. METHOXY POLYETHYLENE GLYCOL-EPOETIN BETA [Suspect]
     Indication: NEPHROGENIC ANAEMIA
     Route: 042
     Dates: start: 20111101, end: 20111101
  2. METHOXY POLYETHYLENE GLYCOL-EPOETIN BETA [Suspect]
     Indication: NEPHROGENIC ANAEMIA
     Route: 042
     Dates: start: 20111201, end: 20120103
  3. METHOXY POLYETHYLENE GLYCOL-EPOETIN BETA [Suspect]
     Indication: NEPHROGENIC ANAEMIA
     Route: 042
     Dates: start: 20120131, end: 20120131
  4. METHOXY POLYETHYLENE GLYCOL-EPOETIN BETA [Suspect]
     Indication: NEPHROGENIC ANAEMIA
     Route: 042
     Dates: start: 20120218, end: 20120318
  5. METHOXY POLYETHYLENE GLYCOL-EPOETIN BETA [Suspect]
     Indication: NEPHROGENIC ANAEMIA
     Route: 042
     Dates: start: 20120407, end: 20120602
  6. METHOXY POLYETHYLENE GLYCOL-EPOETIN BETA [Suspect]
     Indication: NEPHROGENIC ANAEMIA
     Route: 042
     Dates: start: 20120707, end: 20120707
  7. METHOXY POLYETHYLENE GLYCOL-EPOETIN BETA [Suspect]
     Indication: NEPHROGENIC ANAEMIA
     Route: 042
     Dates: start: 20120621, end: 20120621
  8. METHOXY POLYETHYLENE GLYCOL-EPOETIN BETA [Suspect]
     Indication: NEPHROGENIC ANAEMIA
     Route: 042
     Dates: start: 20120804, end: 20120804
  9. ROCALTROL [Concomitant]
     Indication: DIABETIC NEPHROPATHY
     Route: 042
     Dates: end: 20120602
  10. ROCALTROL [Concomitant]
     Indication: DIABETIC NEPHROPATHY
     Route: 042
     Dates: start: 20120605
  11. ADALAT CR [Concomitant]
     Route: 048
     Dates: end: 20110606
  12. ADALAT CR [Concomitant]
     Route: 048
     Dates: end: 20110514
  13. ADALAT CR [Concomitant]
     Route: 048
     Dates: start: 20110517, end: 20110708
  14. ADALAT CR [Concomitant]
     Route: 048
     Dates: start: 20110517, end: 20110604
  15. ADALAT CR [Concomitant]
     Route: 048
     Dates: start: 20110608, end: 20110710
  16. ADALAT CR [Concomitant]
     Route: 048
     Dates: start: 20110711
  17. ADALAT CR [Concomitant]
     Route: 048
     Dates: start: 20110712

REACTIONS (1)
  - Haemoglobin decreased [Not Recovered/Not Resolved]
